FAERS Safety Report 19677183 (Version 3)
Quarter: 2021Q3

REPORT INFORMATION
  Report Type: Spontaneous
  Country: ES (occurrence: ES)
  Receive Date: 20210809
  Receipt Date: 20210817
  Transmission Date: 20211014
  Serious: Yes (Hospitalization)
  Sender: FDA-Public Use
  Company Number: ES-SA-2021SA256958

PATIENT
  Age: 50 Year
  Sex: Female

DRUGS (1)
  1. APIDRA [Suspect]
     Active Substance: INSULIN GLULISINE
     Indication: TYPE 1 DIABETES MELLITUS
     Dosage: 12 IU, Q8H
     Route: 058
     Dates: start: 2011

REACTIONS (6)
  - Blood glucose increased [Recovered/Resolved]
  - Device operational issue [Unknown]
  - Injection site discomfort [Unknown]
  - Brain injury [Recovering/Resolving]
  - Fall [Recovering/Resolving]
  - Injection site pain [Unknown]
